FAERS Safety Report 10923829 (Version 1)
Quarter: 2015Q1

REPORT INFORMATION
  Report Type: Spontaneous
  Country: GB (occurrence: GB)
  Receive Date: 20150318
  Receipt Date: 20150318
  Transmission Date: 20150721
  Serious: Yes (Other)
  Sender: FDA-Public Use
  Company Number: GB-AUROBINDO-AUR-APL-2015-02160

PATIENT
  Age: 39 Year
  Sex: Female

DRUGS (2)
  1. CITALOPRAM [Suspect]
     Active Substance: CITALOPRAM HYDROBROMIDE
     Indication: PRODUCT USED FOR UNKNOWN INDICATION
     Dosage: 10-20 MG
  2. ALCOHOL. [Interacting]
     Active Substance: ALCOHOL
     Indication: PRODUCT USED FOR UNKNOWN INDICATION
     Dosage: UNK
     Route: 065

REACTIONS (13)
  - Physical assault [Unknown]
  - Overdose [Unknown]
  - Sexually inappropriate behaviour [Unknown]
  - Aggression [Unknown]
  - Nightmare [Unknown]
  - Crying [Unknown]
  - Amnesia [Unknown]
  - Somnambulism [Unknown]
  - Anger [Unknown]
  - Loss of employment [Unknown]
  - Alcohol interaction [Unknown]
  - Loss of libido [Unknown]
  - Affect lability [Unknown]
